FAERS Safety Report 18642450 (Version 1)
Quarter: 2020Q4

REPORT INFORMATION
  Report Type: Spontaneous
  Country: US (occurrence: US)
  Receive Date: 20201221
  Receipt Date: 20201221
  Transmission Date: 20210114
  Serious: Yes (Disabling, Other)
  Sender: FDA-Public Use
  Company Number: US-REGENERON PHARMACEUTICALS, INC.-2020-94538

PATIENT

DRUGS (3)
  1. EYLEA [Suspect]
     Active Substance: AFLIBERCEPT
     Dosage: 2 MG
     Route: 031
     Dates: start: 202011, end: 202011
  2. EYLEA [Suspect]
     Active Substance: AFLIBERCEPT
     Indication: PRODUCT USED FOR UNKNOWN INDICATION
     Dosage: 2 MG
     Route: 031
     Dates: start: 2020
  3. EYLEA [Suspect]
     Active Substance: AFLIBERCEPT
     Dosage: 2 MG
     Route: 031
     Dates: start: 20201030, end: 20201030

REACTIONS (4)
  - Visual impairment [Unknown]
  - Injection site discomfort [Unknown]
  - Blindness unilateral [Recovering/Resolving]
  - Retinal artery occlusion [Unknown]

NARRATIVE: CASE EVENT DATE: 2020
